FAERS Safety Report 5458027-7 (Version None)
Quarter: 2007Q3

REPORT INFORMATION
  Report Type: 
  Country: None (occurrence: None)
  Receive Date: 20070919
  Receipt Date: 20070912
  Transmission Date: 20080115
  Serious: Yes (Other)
  Sender: FDA-Public Use
  Company Number: PHBS2007IT15044

PATIENT
  Age: 77 Year
  Sex: Male

DRUGS (3)
  1. ZOMETA [Suspect]
     Indication: METASTASES TO BONE
     Dosage: 4 MG CYCLIC
     Route: 042
     Dates: start: 20050804, end: 20070521
  2. THALIDOMIDE [Concomitant]
     Dosage: 100 MG, UNK
  3. SOLDESAM [Concomitant]
     Dosage: 8 MG / 2 ML
     Route: 042

REACTIONS (1)
  - OSTEONECROSIS [None]
